FAERS Safety Report 22059224 (Version 1)
Quarter: 2023Q1

REPORT INFORMATION
  Report Type: Spontaneous
  Country: IN (occurrence: IN)
  Receive Date: 20230303
  Receipt Date: 20230303
  Transmission Date: 20230418
  Serious: Yes (Other)
  Sender: FDA-Public Use
  Company Number: IN-MYLANLABS-2023M1022884

PATIENT
  Age: 59 Year
  Sex: Male

DRUGS (3)
  1. TEMOZOLOMIDE [Suspect]
     Active Substance: TEMOZOLOMIDE
     Indication: Glioblastoma multiforme
     Dosage: 75 MILLIGRAM/SQ. METER
     Route: 048
  2. TEMOZOLOMIDE [Suspect]
     Active Substance: TEMOZOLOMIDE
     Dosage: RESTARTED TEMOZOLOMIDE 75MG/M 2
     Route: 048
  3. PHENYTOIN [Suspect]
     Active Substance: PHENYTOIN
     Indication: Product used for unknown indication
     Dosage: 100 MILLIGRAM, TID, THE PATIENT RECEIVED ORAL PHENYTOIN 100MG THRICE DAY
     Route: 048

REACTIONS (1)
  - Drug reaction with eosinophilia and systemic symptoms [Recovered/Resolved]
